FAERS Safety Report 19452870 (Version 1)
Quarter: 2021Q2

REPORT INFORMATION
  Report Type: Spontaneous
  Country: DZ (occurrence: DZ)
  Receive Date: 20210623
  Receipt Date: 20210623
  Transmission Date: 20210717
  Serious: Yes (Death, Other)
  Sender: FDA-Public Use
  Company Number: DZ-ABBVIE-21K-003-3961549-00

PATIENT

DRUGS (1)
  1. BERACTANT [Suspect]
     Active Substance: BERACTANT
     Indication: NEONATAL RESPIRATORY DISTRESS SYNDROME
     Dosage: 4 ML/KG SINGLE INSTILLATION
     Route: 039

REACTIONS (3)
  - Haemodynamic instability [Fatal]
  - Pulmonary haemorrhage [Fatal]
  - Coagulopathy [Fatal]

NARRATIVE: CASE EVENT DATE: 202102
